FAERS Safety Report 16633906 (Version 1)
Quarter: 2019Q3

REPORT INFORMATION
  Report Type: Spontaneous
  Country: US (occurrence: US)
  Receive Date: 20190725
  Receipt Date: 20190725
  Transmission Date: 20191004
  Serious: Yes (Other)
  Sender: FDA-Public Use
  Company Number: US-DERMIRA, INC.-US-2019DER000254

PATIENT
  Sex: Male

DRUGS (2)
  1. QBREXZA [Suspect]
     Active Substance: GLYCOPYRRONIUM TOSYLATE
     Dosage: UNK
     Route: 061
     Dates: start: 201904, end: 201904
  2. QBREXZA [Suspect]
     Active Substance: GLYCOPYRRONIUM TOSYLATE
     Indication: HYPERHIDROSIS
     Dosage: UNK, QD
     Route: 061
     Dates: start: 201904, end: 201904

REACTIONS (2)
  - Urinary hesitation [Unknown]
  - Dry mouth [Recovering/Resolving]

NARRATIVE: CASE EVENT DATE: 201904
